FAERS Safety Report 18006239 (Version 1)
Quarter: 2020Q3

REPORT INFORMATION
  Report Type: Spontaneous
  Country: US (occurrence: US)
  Receive Date: 20200710
  Receipt Date: 20200710
  Transmission Date: 20201103
  Serious: No
  Sender: FDA-Public Use
  Company Number: US-009507513-2007USA003320

PATIENT
  Age: 11 Year
  Sex: Female

DRUGS (3)
  1. TEMODAR [Suspect]
     Active Substance: TEMOZOLOMIDE
     Indication: CUTANEOUS T-CELL LYMPHOMA
     Dosage: 160 MILLIGRAM/SQ. METER, QD X 5 DAYS (42 DAY CYCLES)
  2. LOMUSTINE. [Concomitant]
     Active Substance: LOMUSTINE
     Indication: CUTANEOUS T-CELL LYMPHOMA
     Dosage: 90 MILLIGRAM/SQ. METER ON DAY 1 OF CYCLE
  3. TEMODAR [Suspect]
     Active Substance: TEMOZOLOMIDE
     Dosage: 90 MILLIGRAM/SQ. METER, QD

REACTIONS (1)
  - Off label use [Unknown]
